FAERS Safety Report 8889181 (Version 1)
Quarter: 2012Q4

REPORT INFORMATION
  Report Type: 
  Country: JP (occurrence: JP)
  Receive Date: 20121106
  Receipt Date: 20121106
  Transmission Date: 20130627
  Serious: Yes (Hospitalization)
  Sender: FDA-Public Use
  Company Number: JP-BAXTER-2012BAX020819

PATIENT
  Sex: Female
  Weight: 50 kg

DRUGS (2)
  1. DIANEAL-N PD-4 1.5 PD SOLUTION [Suspect]
     Indication: DIABETIC NEPHROPATHY
     Route: 033
     Dates: start: 20120811
  2. DIANEAL-N PD-4 2.5 PD SOLUTION [Suspect]
     Indication: DIABETIC NEPHROPATHY
     Route: 033
     Dates: start: 20120811

REACTIONS (1)
  - Arthritis bacterial [Recovering/Resolving]
